FAERS Safety Report 15999388 (Version 1)
Quarter: 2019Q1

REPORT INFORMATION
  Report Type: Spontaneous
  Country: US (occurrence: US)
  Receive Date: 20190222
  Receipt Date: 20190222
  Transmission Date: 20190418
  Serious: No
  Sender: FDA-Public Use
  Company Number: None

PATIENT
  Age: 5 Year
  Sex: Female
  Weight: 15.75 kg

DRUGS (2)
  1. IBUPROFEN (W/O CORN) 140 MG CAPSULE [Suspect]
     Active Substance: IBUPROFEN
     Indication: PYREXIA
     Dosage: ?          QUANTITY:30 CAPSULE(S);?
     Route: 048
     Dates: start: 20190216, end: 20190218
  2. DIPHENHYDRAMINE (W/O CORN) 13.75 MG [Suspect]
     Active Substance: DIPHENHYDRAMINE
     Indication: NASAL CONGESTION
     Dosage: ?          QUANTITY:30 CAPSULE(S);?
     Route: 048
     Dates: start: 20190216, end: 20190217

REACTIONS (15)
  - Abnormal behaviour [None]
  - Sudden onset of sleep [None]
  - Product preparation error [None]
  - Product complaint [None]
  - Confusional state [None]
  - Pulmonary congestion [None]
  - Discomfort [None]
  - Soliloquy [None]
  - Hyporesponsive to stimuli [None]
  - Somnambulism [None]
  - Pyrexia [None]
  - Nasopharyngitis [None]
  - Balance disorder [None]
  - Stereotypy [None]
  - Therapy non-responder [None]

NARRATIVE: CASE EVENT DATE: 20190216
